FAERS Safety Report 4623586-0 (Version None)
Quarter: 2005Q2

REPORT INFORMATION
  Report Type: 
  Country: None (occurrence: None)
  Receive Date: 20050325
  Receipt Date: 20050118
  Transmission Date: 20051028
  Serious: No
  Sender: FDA-Public Use
  Company Number: USA041080210

PATIENT
  Age: 72 Year
  Sex: Female
  Weight: 74 kg

DRUGS (7)
  1. FORTEO [Suspect]
     Indication: OSTEOPOROSIS
     Dosage: 20 UG DAY
     Dates: start: 20040925
  2. NORVASC [Concomitant]
  3. TOPROL-XL [Concomitant]
  4. LESCOL XL [Concomitant]
  5. PREVACID (LASOPRAZOLE) [Concomitant]
  6. CELEBREX [Concomitant]
  7. XANAX (ALPRAZOLAM DUM) [Concomitant]

REACTIONS (1)
  - CARDIAC FLUTTER [None]
